FAERS Safety Report 5525914-0 (Version None)
Quarter: 2007Q4

REPORT INFORMATION
  Report Type: 
  Country: None (occurrence: None)
  Receive Date: 20071126
  Receipt Date: 20071115
  Transmission Date: 20080405
  Serious: Yes (Death, Other)
  Sender: FDA-Public Use
  Company Number: PHBS2007SA19091

PATIENT
  Age: 50 Year
  Sex: Male

DRUGS (5)
  1. CYCLOSPORINE [Suspect]
     Indication: RENAL TRANSPLANT
     Route: 065
  2. METHYLPREDNISOLONE [Suspect]
     Indication: RENAL TRANSPLANT
     Dosage: 2 COURSES OF 5-DAY
     Route: 042
  3. TACROLIMUS [Suspect]
     Indication: RENAL TRANSPLANT
  4. MYCOPHENOLATE MOFETIL [Suspect]
     Indication: RENAL TRANSPLANT
     Dosage: 750 MG, BID
     Route: 065
  5. PREDNISOLONE [Suspect]
     Indication: RENAL TRANSPLANT
     Dosage: 15 MG/DAY
     Route: 048

REACTIONS (16)
  - ASPERGILLOSIS [None]
  - COMPLICATIONS OF TRANSPLANTED KIDNEY [None]
  - CYTOMEGALOVIRUS INFECTION [None]
  - DISSEMINATED TUBERCULOSIS [None]
  - HAEMORRHAGE INTRACRANIAL [None]
  - INTUBATION [None]
  - KIDNEY TRANSPLANT REJECTION [None]
  - LEUKOPENIA [None]
  - LOSS OF CONSCIOUSNESS [None]
  - LUNG INFILTRATION [None]
  - MULTI-ORGAN FAILURE [None]
  - PERIRENAL HAEMATOMA [None]
  - PSEUDOMONAS INFECTION [None]
  - PYREXIA [None]
  - SEPTIC SHOCK [None]
  - THYROIDITIS [None]
